FAERS Safety Report 15651957 (Version 7)
Quarter: 2021Q3

REPORT INFORMATION
  Report Type: Spontaneous
  Country: US (occurrence: US)
  Receive Date: 20181123
  Receipt Date: 20210916
  Transmission Date: 20211014
  Serious: Yes (Other)
  Sender: FDA-Public Use
  Company Number: US-GILEAD-2018-0375802

PATIENT
  Age: 57 Year
  Sex: Male
  Weight: 90.7 kg

DRUGS (94)
  1. VIRAMUNE [Concomitant]
     Active Substance: NEVIRAPINE
  2. COMBIVIR [Concomitant]
     Active Substance: LAMIVUDINE\ZIDOVUDINE
  3. CRIXIVAN [Concomitant]
     Active Substance: INDINAVIR SULFATE
  4. MELATONIN [Concomitant]
     Active Substance: MELATONIN
  5. ASPIRIN [ACETYLSALICYLIC ACID] [Concomitant]
     Active Substance: ASPIRIN
  6. BACLOFEN. [Concomitant]
     Active Substance: BACLOFEN
  7. ARIPIPRAZOLE. [Concomitant]
     Active Substance: ARIPIPRAZOLE
  8. DEPAKOTE [Concomitant]
     Active Substance: DIVALPROEX SODIUM
  9. CHANTIX [Concomitant]
     Active Substance: VARENICLINE TARTRATE
  10. AMITRIPTYLINE [Concomitant]
     Active Substance: AMITRIPTYLINE
  11. BENZTROPINE MESILATE [Concomitant]
     Active Substance: BENZTROPINE MESYLATE
  12. DIPHENHYDRAMINE. [Concomitant]
     Active Substance: DIPHENHYDRAMINE
  13. NITROGLYCERINE [Concomitant]
     Active Substance: NITROGLYCERIN
  14. DOXYCYCLINE. [Concomitant]
     Active Substance: DOXYCYCLINE
  15. TAMIFLU [Concomitant]
     Active Substance: OSELTAMIVIR PHOSPHATE
  16. MECLIZINE HCL [Concomitant]
     Active Substance: MECLIZINE HYDROCHLORIDE
  17. MUPIROCIN. [Concomitant]
     Active Substance: MUPIROCIN
  18. ATRIPLA [Suspect]
     Active Substance: EFAVIRENZ\EMTRICITABINE\TENOFOVIR DISOPROXIL FUMARATE
     Indication: HIV INFECTION
     Dosage: UNK
     Route: 048
     Dates: start: 2006, end: 20110317
  19. VIRACEPT [Concomitant]
     Active Substance: NELFINAVIR MESYLATE
  20. VENTOLIN [Concomitant]
     Active Substance: ALBUTEROL SULFATE
  21. ALBUTEROL SULFATE. [Concomitant]
     Active Substance: ALBUTEROL SULFATE
  22. INGREZZA [Concomitant]
     Active Substance: VALBENAZINE
  23. TIZANIDINE. [Concomitant]
     Active Substance: TIZANIDINE
  24. BANOPHEN [Concomitant]
     Active Substance: DIPHENHYDRAMINE HYDROCHLORIDE
  25. LEVAQUIN [Concomitant]
     Active Substance: LEVOFLOXACIN
  26. ALDARA [Concomitant]
     Active Substance: IMIQUIMOD
  27. NAPROXEN. [Concomitant]
     Active Substance: NAPROXEN
  28. PRISTIQ EXTENDED?RELEASE [Concomitant]
     Active Substance: DESVENLAFAXINE SUCCINATE
     Indication: CHRONIC OBSTRUCTIVE PULMONARY DISEASE
  29. HYDROXINE [Concomitant]
     Active Substance: HYDROXYZINE HYDROCHLORIDE
     Indication: HYPERSENSITIVITY
  30. DIVALPROEX [Concomitant]
     Active Substance: DIVALPROEX SODIUM
     Indication: DEPRESSION
  31. CLOTRIMAZOLE. [Concomitant]
     Active Substance: CLOTRIMAZOLE
  32. JANUVIA [Concomitant]
     Active Substance: SITAGLIPTIN PHOSPHATE
  33. PAROXETINE. [Concomitant]
     Active Substance: PAROXETINE
  34. AUGMENTIN [Concomitant]
     Active Substance: AMOXICILLIN\CLAVULANATE POTASSIUM
  35. AMBIEN [Concomitant]
     Active Substance: ZOLPIDEM TARTRATE
  36. NYSTATIN. [Concomitant]
     Active Substance: NYSTATIN
  37. MICONAZOLE. [Concomitant]
     Active Substance: MICONAZOLE
  38. RISPERIDONE. [Concomitant]
     Active Substance: RISPERIDONE
  39. ANDROGEL [Concomitant]
     Active Substance: TESTOSTERONE
  40. EMTRIVA [Concomitant]
     Active Substance: EMTRICITABINE
  41. DESVENLAFAXINE. [Concomitant]
     Active Substance: DESVENLAFAXINE
  42. SAPHRIS [Concomitant]
     Active Substance: ASENAPINE MALEATE
  43. TRINTELLIX [Concomitant]
     Active Substance: VORTIOXETINE HYDROBROMIDE
  44. TOPIRAMATE. [Concomitant]
     Active Substance: TOPIRAMATE
  45. N?ACETYLCYSTEINE [Concomitant]
     Active Substance: ACETYLCYSTEINE
  46. ZOFRAN [Concomitant]
     Active Substance: ONDANSETRON HYDROCHLORIDE
  47. LINEZOLID. [Concomitant]
     Active Substance: LINEZOLID
  48. RETROVIR [Concomitant]
     Active Substance: ZIDOVUDINE
  49. OMEGA?3 FATTY ACIDS [Concomitant]
     Active Substance: OMEGA-3 FATTY ACIDS
  50. FLUOXETINE [Concomitant]
     Active Substance: FLUOXETINE HYDROCHLORIDE
  51. SPIRIVA [Concomitant]
     Active Substance: TIOTROPIUM BROMIDE MONOHYDRATE
  52. PROTONIX [OMEPRAZOLE] [Concomitant]
     Active Substance: OMEPRAZOLE
  53. SYMBICORT [Concomitant]
     Active Substance: BUDESONIDE\FORMOTEROL FUMARATE DIHYDRATE
  54. MELOXICAM. [Concomitant]
     Active Substance: MELOXICAM
  55. FLEXERIL [Concomitant]
     Active Substance: CYCLOBENZAPRINE HYDROCHLORIDE
  56. PENICILLIN [BENZYLPENICILLIN POTASSIUM] [Concomitant]
  57. EPCLUSA [Concomitant]
     Active Substance: SOFOSBUVIR\VELPATASVIR
  58. METFORMIN [Concomitant]
     Active Substance: METFORMIN HYDROCHLORIDE
     Indication: DIABETES MELLITUS
  59. STIOLTO RESPIMAT [Concomitant]
     Active Substance: OLODATEROL HYDROCHLORIDE\TIOTROPIUM BROMIDE MONOHYDRATE
  60. FLOMAX [Concomitant]
     Active Substance: TAMSULOSIN HYDROCHLORIDE
  61. SERTRALINE [Concomitant]
     Active Substance: SERTRALINE HYDROCHLORIDE
  62. DULOXETINE. [Concomitant]
     Active Substance: DULOXETINE
  63. MEDROL [Concomitant]
     Active Substance: METHYLPREDNISOLONE
  64. FLUCONAZOLE. [Concomitant]
     Active Substance: FLUCONAZOLE
  65. VITAMIN C ACID [Concomitant]
     Active Substance: ASCORBIC ACID
  66. METROCREAM [Concomitant]
     Active Substance: METRONIDAZOLE
  67. MIRALAX [Concomitant]
     Active Substance: POLYETHYLENE GLYCOL 3350
  68. VIREAD [Suspect]
     Active Substance: TENOFOVIR DISOPROXIL FUMARATE
     Indication: HIV INFECTION
     Dosage: UNK
     Route: 048
     Dates: start: 200111, end: 2006
  69. STRIBILD [Suspect]
     Active Substance: COBICISTAT\ELVITEGRAVIR\EMTRICITABINE\TENOFOVIR DISOPROXIL FUMARATE
     Indication: HIV INFECTION
     Dosage: UNK
     Route: 048
     Dates: start: 20140905, end: 20180904
  70. REYATAZ [Concomitant]
     Active Substance: ATAZANAVIR SULFATE
  71. PROAIR HFA [Concomitant]
     Active Substance: ALBUTEROL SULFATE
     Indication: CHRONIC OBSTRUCTIVE PULMONARY DISEASE
  72. ABILIFY [Concomitant]
     Active Substance: ARIPIPRAZOLE
     Indication: BEHAVIOURAL THERAPY
  73. PRAVASTATIN. [Concomitant]
     Active Substance: PRAVASTATIN
  74. GLIPIZIDE. [Concomitant]
     Active Substance: GLIPIZIDE
  75. CITALOPRAM [Concomitant]
     Active Substance: CITALOPRAM HYDROBROMIDE
  76. VIAGRA [Concomitant]
     Active Substance: SILDENAFIL CITRATE
  77. GEODON [Concomitant]
     Active Substance: ZIPRASIDONE HYDROCHLORIDE\ZIPRASIDONE MESYLATE
  78. WELLBUTRIN [Concomitant]
     Active Substance: BUPROPION HYDROCHLORIDE
  79. KEFLEX [Concomitant]
     Active Substance: CEPHALEXIN
  80. TRUVADA [Suspect]
     Active Substance: EMTRICITABINE\TENOFOVIR DISOPROXIL FUMARATE
     Indication: HIV INFECTION
     Dosage: UNK
     Route: 048
     Dates: start: 20110419, end: 20140408
  81. BIKTARVY [Concomitant]
     Active Substance: BICTEGRAVIR SODIUM\EMTRICITABINE\TENOFOVIR ALAFENAMIDE FUMARATE
  82. EPIVIR [Concomitant]
     Active Substance: LAMIVUDINE
  83. PANTOPRAZOLE [Concomitant]
     Active Substance: PANTOPRAZOLE
     Indication: GASTROOESOPHAGEAL REFLUX DISEASE
  84. TRAZODONE [Concomitant]
     Active Substance: TRAZODONE HYDROCHLORIDE
     Indication: AFFECTIVE DISORDER
  85. LAMOTRIGINE. [Concomitant]
     Active Substance: LAMOTRIGINE
     Indication: AFFECTIVE DISORDER
  86. NORVIR [Concomitant]
     Active Substance: RITONAVIR
  87. MODAFINIL. [Concomitant]
     Active Substance: MODAFINIL
  88. OLANZAPINE. [Concomitant]
     Active Substance: OLANZAPINE
  89. TESSALON [Concomitant]
     Active Substance: BENZONATATE
  90. MUCINEX [Concomitant]
     Active Substance: GUAIFENESIN
  91. CETIRIZINE [Concomitant]
     Active Substance: CETIRIZINE HYDROCHLORIDE
  92. NUVIGIL [Concomitant]
     Active Substance: ARMODAFINIL
  93. HIBICLENS [Concomitant]
     Active Substance: CHLORHEXIDINE GLUCONATE
  94. MIDAZOLAM. [Concomitant]
     Active Substance: MIDAZOLAM

REACTIONS (14)
  - Fracture [Not Recovered/Not Resolved]
  - Economic problem [Unknown]
  - Osteoporosis [Not Recovered/Not Resolved]
  - Bone density decreased [Unknown]
  - Anhedonia [Not Recovered/Not Resolved]
  - Osteopenia [Not Recovered/Not Resolved]
  - Emotional distress [Not Recovered/Not Resolved]
  - Renal impairment [Not Recovered/Not Resolved]
  - Virologic failure [Unknown]
  - Hip fracture [Not Recovered/Not Resolved]
  - Mobility decreased [Not Recovered/Not Resolved]
  - Anxiety [Not Recovered/Not Resolved]
  - Drug resistance [Unknown]
  - Pain [Not Recovered/Not Resolved]

NARRATIVE: CASE EVENT DATE: 201703
